FAERS Safety Report 9172026 (Version 1)
Quarter: 2013Q1

REPORT INFORMATION
  Report Type: Spontaneous
  Country: US (occurrence: US)
  Receive Date: 20130319
  Receipt Date: 20130319
  Transmission Date: 20140127
  Serious: Yes (Other)
  Sender: FDA-Public Use
  Company Number: PHEH2013US004465

PATIENT
  Age: 56 Year
  Sex: Male
  Weight: 97.96 kg

DRUGS (6)
  1. EXTAVIA [Suspect]
     Indication: MULTIPLE SCLEROSIS
     Dosage: 0.25 MG, QOD
     Route: 058
     Dates: start: 201007
  2. TRILEPTAL [Concomitant]
  3. FISH OIL [Concomitant]
     Dosage: UNK UKN, QD
  4. LEXAPRO [Concomitant]
     Dosage: 10 MG, UNK
  5. NORVASC [Concomitant]
     Dosage: 5 MG, UNK
  6. VIT D [Concomitant]

REACTIONS (10)
  - Syncope [Recovered/Resolved]
  - Tremor [Recovered/Resolved]
  - Bone pain [Recovered/Resolved]
  - Nasopharyngitis [Recovered/Resolved]
  - Flushing [Recovered/Resolved]
  - Anxiety [Recovered/Resolved]
  - Chills [Recovered/Resolved]
  - Malaise [Recovered/Resolved]
  - Myalgia [Recovered/Resolved]
  - Headache [Recovered/Resolved]
